FAERS Safety Report 8105817-8 (Version None)
Quarter: 2012Q1

REPORT INFORMATION
  Report Type: 
  Country: None (occurrence: None)
  Receive Date: 20120201
  Receipt Date: 20111219
  Transmission Date: 20120608
  Serious: No
  Sender: FDA-Public Use
  Company Number: PHHY2011ES115240

PATIENT
  Sex: Male

DRUGS (2)
  1. ALCOHOL [Interacting]
     Dosage: UNK UKN, UNK
  2. TASIGNA [Suspect]
     Indication: CHRONIC MYELOID LEUKAEMIA
     Dosage: UNK UKN, UNK

REACTIONS (3)
  - ENZYME ABNORMALITY [None]
  - DRUG INTERACTION [None]
  - DRUG INEFFECTIVE [None]
